FAERS Safety Report 4380034-6 (Version None)
Quarter: 2004Q2

REPORT INFORMATION
  Report Type: 
  Country: None (occurrence: None)
  Receive Date: 20040614
  Receipt Date: 20040510
  Transmission Date: 20050107
  Serious: No
  Sender: FDA-Public Use
  Company Number: M04-341-146

PATIENT
  Age: 48 Year
  Sex: Male

DRUGS (2)
  1. VELCADE [Suspect]
     Indication: MULTIPLE MYELOMA
     Dosage: 2 MG: INTRAVENOUS
     Route: 042
     Dates: start: 20040404
  2. ZOMETA [Concomitant]

REACTIONS (4)
  - ABDOMINAL PAIN [None]
  - CONFUSIONAL STATE [None]
  - DIARRHOEA [None]
  - HALLUCINATION [None]
